FAERS Safety Report 7032744-X (Version None)
Quarter: 2010Q4

REPORT INFORMATION
  Report Type: 
  Country: None (occurrence: None)
  Receive Date: 20101007
  Receipt Date: 20100929
  Transmission Date: 20110411
  Serious: No
  Sender: FDA-Public Use
  Company Number: US-PFIZER INC-2010124038

PATIENT
  Sex: Female
  Weight: 100 kg

DRUGS (4)
  1. GEODON [Suspect]
     Indication: DEPRESSION
     Dosage: 80 MG, DAILY AT NIGHT
     Route: 048
     Dates: start: 20100901
  2. LORAZEPAM [Suspect]
     Indication: ANXIETY
     Dosage: 2 MG, AS NEEDED
     Route: 048
  3. AMBIEN [Concomitant]
     Indication: SLEEP DISORDER
     Dosage: 10 MG, DAILY AT NIGHT
     Route: 048
  4. PROZAC [Concomitant]
     Indication: DEPRESSION
     Dosage: 60 MG, DAILY
     Route: 048

REACTIONS (5)
  - ANXIETY [None]
  - FATIGUE [None]
  - FEELING ABNORMAL [None]
  - FEELING JITTERY [None]
  - SOMNOLENCE [None]
